FAERS Safety Report 18368086 (Version 1)
Quarter: 2020Q4

REPORT INFORMATION
  Report Type: Spontaneous
  Country: MX (occurrence: MX)
  Receive Date: 20201009
  Receipt Date: 20201009
  Transmission Date: 20210114
  Serious: Yes (Death)
  Sender: FDA-Public Use
  Company Number: MX-FRESENIUS KABI-FK202010453

PATIENT
  Age: 71 Year
  Sex: Female

DRUGS (4)
  1. PREDNISOLONE. [Suspect]
     Active Substance: PREDNISOLONE
     Indication: PRODUCT USED FOR UNKNOWN INDICATION
     Dosage: UNKNOWN
     Route: 065
  2. DEXAMETHASONE INJECTION (MANUFACTURER UNKNOWN) [Suspect]
     Active Substance: DEXAMETHASONE
     Indication: AMOEBIC BRAIN ABSCESS
     Route: 042
     Dates: start: 2018
  3. METRONIDAZOLE. [Concomitant]
     Active Substance: METRONIDAZOLE
     Indication: AMOEBIC BRAIN ABSCESS
     Route: 042
  4. CEFTRIAXONE. [Concomitant]
     Active Substance: CEFTRIAXONE
     Indication: AMOEBIC BRAIN ABSCESS
     Route: 042
     Dates: start: 2018

REACTIONS (2)
  - Amoebic brain abscess [Fatal]
  - Condition aggravated [Fatal]

NARRATIVE: CASE EVENT DATE: 20181014
